FAERS Safety Report 19872867 (Version 1)
Quarter: 2021Q3

REPORT INFORMATION
  Report Type: Spontaneous
  Country: US (occurrence: US)
  Receive Date: 20210923
  Receipt Date: 20210923
  Transmission Date: 20211014
  Serious: Yes (Other)
  Sender: FDA-Public Use
  Company Number: None

PATIENT
  Age: 38 Year
  Sex: Female
  Weight: 87.9 kg

DRUGS (6)
  1. REGEN?COV [Suspect]
     Active Substance: CASIRIVIMAB\IMDEVIMAB
     Indication: SARS-COV-2 TEST POSITIVE
     Dosage: ?          OTHER FREQUENCY:ONCE;?
     Route: 041
  2. ROSUVASTATIN 10MG NIGHTLY [Concomitant]
  3. ALBUTEROL INHALER EVERY 6 HOURS [Concomitant]
  4. HYDROXYZINE 10MG TID PRN [Concomitant]
  5. TRIAMCINOLONE 0.1% TOPICAL DREAM PRN [Concomitant]
  6. LEXAPRO 10MG DAILY [Concomitant]

REACTIONS (2)
  - Headache [None]
  - Rash [None]

NARRATIVE: CASE EVENT DATE: 20210921
